FAERS Safety Report 23850151 (Version 1)
Quarter: 2024Q2

REPORT INFORMATION
  Report Type: Spontaneous
  Country: US (occurrence: US)
  Receive Date: 20240513
  Receipt Date: 20240513
  Transmission Date: 20240715
  Serious: Yes (Other)
  Sender: FDA-Public Use
  Company Number: US-AMGEN-USASP2024091692

PATIENT
  Age: 67 Year
  Sex: Female

DRUGS (2)
  1. PROLIA [Suspect]
     Active Substance: DENOSUMAB
     Indication: Osteopenia
     Dosage: UNK
     Route: 065
  2. DEXAMETHASONE [Concomitant]
     Active Substance: DEXAMETHASONE
     Dosage: 1 MILLIGRAM
     Route: 065

REACTIONS (7)
  - Amyloidoma [Unknown]
  - Hyperplasia adrenal [Unknown]
  - Drug effective for unapproved indication [Unknown]
  - Adrenal neoplasm [Unknown]
  - Cortisol abnormal [Unknown]
  - Off label use [Unknown]
  - Fall [Unknown]
